FAERS Safety Report 20958840 (Version 7)
Quarter: 2022Q3

REPORT INFORMATION
  Report Type: Report from Study
  Country: US (occurrence: US)
  Receive Date: 20220614
  Receipt Date: 20220722
  Transmission Date: 20221026
  Serious: Yes (Other)
  Sender: FDA-Public Use
  Company Number: US-NOVARTISTESTPH-NVSC2022US135797

PATIENT
  Sex: Female
  Weight: 77.551 kg

DRUGS (7)
  1. TREPROSTINIL [Suspect]
     Active Substance: TREPROSTINIL
     Indication: Pulmonary arterial hypertension
     Dosage: 3 NG/KG/MIN, CONT (0.003 UG/KG)
     Route: 058
  2. TREPROSTINIL [Suspect]
     Active Substance: TREPROSTINIL
     Dosage: 6 NG/KG/MIN, CONT
     Route: 042
     Dates: start: 20220127
  3. TREPROSTINIL [Suspect]
     Active Substance: TREPROSTINIL
     Dosage: 0.003 ?G/KG, CONT
     Route: 041
     Dates: end: 20220610
  4. TYVASO [Suspect]
     Active Substance: TREPROSTINIL
     Indication: Pulmonary arterial hypertension
     Dosage: UNK
     Route: 055
     Dates: start: 20220527
  5. TYVASO [Suspect]
     Active Substance: TREPROSTINIL
     Dosage: 18-72 UG (3-12 BREATHS), QID
     Route: 055
     Dates: start: 2022
  6. TYVASO [Suspect]
     Active Substance: TREPROSTINIL
     Dosage: 18 UG, QID
     Route: 055
     Dates: start: 2022
  7. OPSUMIT [Concomitant]
     Active Substance: MACITENTAN
     Indication: Product used for unknown indication
     Dosage: UNK
     Route: 065

REACTIONS (9)
  - Hypotension [Unknown]
  - Cough [Recovering/Resolving]
  - Head discomfort [Recovering/Resolving]
  - Somnolence [Unknown]
  - Fatigue [Unknown]
  - Diarrhoea [Unknown]
  - Pruritus [Unknown]
  - Dizziness [Unknown]
  - Rash [Recovering/Resolving]

NARRATIVE: CASE EVENT DATE: 20220101
